FAERS Safety Report 4474914-0 (Version None)
Quarter: 2004Q4

REPORT INFORMATION
  Report Type: 
  Country: None (occurrence: None)
  Receive Date: 20041014
  Receipt Date: 20041008
  Transmission Date: 20050328
  Serious: Yes (Death, Life-Threatening, Hospitalization, Disabling)
  Sender: FDA-Public Use
  Company Number: US-MERCK-0410USA01484

PATIENT
  Age: 70 Year
  Sex: Male

DRUGS (5)
  1. [THERAPY UNSPECIFIED] [Concomitant]
     Route: 065
  2. ASPIRIN [Concomitant]
     Route: 065
  3. PLAVIX [Concomitant]
     Route: 065
  4. VIOXX [Suspect]
     Indication: ARTHRITIS
     Route: 048
  5. SUCRALFATE [Concomitant]
     Route: 065

REACTIONS (1)
  - MYOCARDIAL INFARCTION [None]
